FAERS Safety Report 7388517 (Version 13)
Quarter: 2013Q4

REPORT INFORMATION
  Report Type: Spontaneous
  Country: US (occurrence: US)
  Receive Date: 20100514
  Receipt Date: 20131212
  Transmission Date: 20140711
  Serious: Yes (Death, Hospitalization, Other)
  Sender: FDA-Public Use
  Company Number: PHEH2010US03427

PATIENT
  Sex: Male
  Weight: 82.54 kg

DRUGS (27)
  1. AREDIA [Suspect]
     Indication: METASTASES TO BONE
     Dosage: 90 MG, QMO
     Route: 042
     Dates: start: 199812, end: 200710
  2. AREDIA [Suspect]
     Indication: PROSTATE CANCER
  3. PAMIDRONATE DISODIUM [Suspect]
     Dosage: UNK UKN, UNK
  4. ZOMETA [Suspect]
     Indication: METASTASES TO BONE
     Dosage: 4 MG, QMO
     Route: 042
     Dates: start: 20020221, end: 200710
  5. ZOMETA [Suspect]
     Indication: PROSTATE CANCER
  6. TAXOTERE [Concomitant]
  7. PREDNISONE [Concomitant]
  8. DEXAMETHASONE [Concomitant]
  9. AZITHROMYCIN [Concomitant]
  10. LEVOFLOXACIN [Concomitant]
  11. KETOCONAZOLE [Concomitant]
  12. PROMETHAZINE [Concomitant]
  13. MIRALAX [Concomitant]
  14. CALCIUM CARBONATE [Concomitant]
  15. FERROUS SULPHATE [Concomitant]
  16. OMEPRAZOLE [Concomitant]
  17. CHLORHEXIDINE [Concomitant]
  18. VITAMIN A [Concomitant]
  19. ROBITUSSIN [Concomitant]
  20. OXYCODONE [Concomitant]
  21. LASIX [Concomitant]
  22. AMOXICILLIN [Concomitant]
     Dosage: 500 MG, UNK
  23. ADVIL [Concomitant]
     Dosage: 2 DF, BID
  24. PENICILLIN [Concomitant]
  25. RADIATION [Concomitant]
  26. FLUTAMIDE [Concomitant]
  27. LIPITOR                                 /NET/ [Concomitant]

REACTIONS (68)
  - Neoplasm progression [Unknown]
  - Malignant neoplasm progression [Unknown]
  - Microcytic anaemia [Unknown]
  - Infection [Unknown]
  - Acquired oesophageal web [Unknown]
  - Dysphagia [Unknown]
  - Mastication disorder [Unknown]
  - Tooth loss [Unknown]
  - Inguinal hernia [Unknown]
  - Osteitis [Unknown]
  - Peripheral vascular disorder [Unknown]
  - Periarthritis [Unknown]
  - Bunion [Unknown]
  - Foot deformity [Unknown]
  - Macular degeneration [Unknown]
  - Macular fibrosis [Unknown]
  - Phimosis [Unknown]
  - Hypoaesthesia [Unknown]
  - Osteonecrosis [Unknown]
  - Jaw disorder [Unknown]
  - Jaw fracture [Unknown]
  - Speech disorder [Unknown]
  - Pneumocystis jirovecii pneumonia [Unknown]
  - Cerumen impaction [Unknown]
  - Bronchitis viral [Unknown]
  - Skin lesion [Unknown]
  - Plasma cell myeloma [Unknown]
  - Second primary malignancy [Unknown]
  - Cardiac murmur [Unknown]
  - Mitral valve incompetence [Unknown]
  - Pathological fracture [Unknown]
  - Bursitis [Unknown]
  - Basal cell carcinoma [Unknown]
  - Oral infection [Unknown]
  - Weight decreased [Unknown]
  - Constipation [Unknown]
  - Death [Fatal]
  - Cardiomegaly [Unknown]
  - Femoral neck fracture [Unknown]
  - Hip fracture [Unknown]
  - Osteoarthritis [Unknown]
  - Osteosclerosis [Unknown]
  - Arteriosclerosis coronary artery [Unknown]
  - Pulmonary granuloma [Unknown]
  - Osteonecrosis of jaw [Unknown]
  - Injury [Unknown]
  - Disability [Unknown]
  - Pain [Unknown]
  - Anxiety [Unknown]
  - Anhedonia [Unknown]
  - Atelectasis [Unknown]
  - Renal cyst [Unknown]
  - Intervertebral disc space narrowing [Unknown]
  - Arthritis [Unknown]
  - Hiatus hernia [Unknown]
  - Bone lesion [Unknown]
  - Actinic keratosis [Unknown]
  - Fall [Unknown]
  - Large intestine polyp [Unknown]
  - Pneumonia [Unknown]
  - Myocardial infarction [Unknown]
  - Hyperlipidaemia [Unknown]
  - Nephrolithiasis [Unknown]
  - Abscess [Recovered/Resolved]
  - Cataract [Unknown]
  - Glaucoma [Unknown]
  - Renal failure chronic [Recovered/Resolved]
  - Oesophageal obstruction [Unknown]
